FAERS Safety Report 22167074 (Version 1)
Quarter: 2023Q1

REPORT INFORMATION
  Report Type: Spontaneous
  Country: US (occurrence: None)
  Receive Date: 20230331
  Receipt Date: 20230331
  Transmission Date: 20230417
  Serious: Yes (Hospitalization)
  Sender: FDA-Public Use
  Company Number: None

PATIENT
  Sex: Female

DRUGS (1)
  1. SILDENAFIL CITRATE [Suspect]
     Active Substance: SILDENAFIL CITRATE
     Indication: Pulmonary arterial hypertension
     Dosage: FREQUENCY : TWICE A DAY;?
     Route: 048
     Dates: start: 20220203

REACTIONS (8)
  - Macular degeneration [None]
  - COVID-19 [None]
  - Fall [None]
  - Panic attack [None]
  - Peripheral swelling [None]
  - Fluid retention [None]
  - Palpitations [None]
  - Tremor [None]
